FAERS Safety Report 4534952-6 (Version None)
Quarter: 2004Q4

REPORT INFORMATION
  Report Type: 
  Country: None (occurrence: None)
  Receive Date: 20041222
  Receipt Date: 20040910
  Transmission Date: 20050328
  Serious: No
  Sender: FDA-Public Use
  Company Number: US-BRISTOL-MYERS SQUIBB COMPANY-12699252

PATIENT
  Age: 74 Year
  Sex: Male

DRUGS (5)
  1. PRAVACHOL [Suspect]
     Indication: HYPERLIPIDAEMIA
     Dates: start: 20000101
  2. AMIODARONE [Concomitant]
  3. DILTIAZEM HCL [Concomitant]
  4. ATENOLOL [Concomitant]
  5. ASPIRIN [Concomitant]

REACTIONS (1)
  - HEADACHE [None]
